FAERS Safety Report 12777535 (Version 1)
Quarter: 2016Q3

REPORT INFORMATION
  Report Type: Spontaneous
  Country: US (occurrence: US)
  Receive Date: 20160924
  Receipt Date: 20160924
  Transmission Date: 20161109
  Serious: No
  Sender: FDA-Public Use
  Company Number: US-TEVA-644747USA

PATIENT
  Age: 63 Year
  Sex: Female
  Weight: 67.19 kg

DRUGS (2)
  1. CLONAZEPAM. [Suspect]
     Active Substance: CLONAZEPAM
     Dosage: 1 MILLIGRAM DAILY;
     Route: 065
     Dates: start: 2015
  2. CLONAZEPAM. [Suspect]
     Active Substance: CLONAZEPAM
     Indication: PANIC DISORDER
     Route: 065
     Dates: start: 20160307

REACTIONS (3)
  - Vision blurred [Not Recovered/Not Resolved]
  - Constipation [Not Recovered/Not Resolved]
  - Diplopia [Not Recovered/Not Resolved]

NARRATIVE: CASE EVENT DATE: 201603
